FAERS Safety Report 4544068-0 (Version None)
Quarter: 2005Q1

REPORT INFORMATION
  Report Type: 
  Country: None (occurrence: None)
  Receive Date: 20050104
  Receipt Date: 20041228
  Transmission Date: 20050727
  Serious: Yes (Life-Threatening, Hospitalization, Disabling)
  Sender: FDA-Public Use
  Company Number: US-MERCK-0412USA03108

PATIENT
  Age: 69 Year
  Sex: Male

DRUGS (4)
  1. VIOXX [Suspect]
     Indication: ARTHRITIS
     Route: 048
     Dates: start: 19990101, end: 20010301
  2. PLAVIX [Concomitant]
     Route: 065
  3. COREG [Concomitant]
     Route: 065
  4. ASPIRIN [Concomitant]
     Route: 065

REACTIONS (4)
  - BLOOD PRESSURE FLUCTUATION [None]
  - GASTRIC HAEMORRHAGE [None]
  - GASTROINTESTINAL PAIN [None]
  - MYOCARDIAL INFARCTION [None]
